FAERS Safety Report 21172447 (Version 1)
Quarter: 2022Q3

REPORT INFORMATION
  Report Type: Spontaneous
  Country: US (occurrence: None)
  Receive Date: 20220803
  Receipt Date: 20220803
  Transmission Date: 20221027
  Serious: Yes (Hospitalization)
  Sender: FDA-Public Use
  Company Number: None

PATIENT
  Age: 26 Year
  Sex: Female
  Weight: 103.5 kg

DRUGS (3)
  1. CITROMA [Suspect]
     Active Substance: MAGNESIUM CITRATE
     Indication: Constipation
     Dosage: OTHER QUANTITY : 2 TABLESPOON(S);?
     Dates: start: 20220719, end: 20220723
  2. UNSPECIFIED INGREDIENT [Concomitant]
     Active Substance: UNSPECIFIED INGREDIENT
  3. VITAMINS [Concomitant]
     Active Substance: VITAMINS

REACTIONS (7)
  - Asthenia [None]
  - Tremor [None]
  - Hypersomnia [None]
  - Hypophagia [None]
  - Hyperhidrosis [None]
  - Cold sweat [None]
  - Bedridden [None]

NARRATIVE: CASE EVENT DATE: 20220719
